FAERS Safety Report 10609954 (Version 8)
Quarter: 2019Q4

REPORT INFORMATION
  Report Type: Spontaneous
  Country: US (occurrence: US)
  Receive Date: 20141126
  Receipt Date: 20191122
  Transmission Date: 20200122
  Serious: Yes (Hospitalization, Other)
  Sender: FDA-Public Use
  Company Number: US-PFIZER INC-2014323469

PATIENT
  Age: 69 Year
  Sex: Female

DRUGS (1)
  1. TOVIAZ [Suspect]
     Active Substance: FESOTERODINE FUMARATE
     Indication: HYPERTONIC BLADDER
     Dosage: 8 MG, 1X/DAY

REACTIONS (8)
  - Therapeutic product effect incomplete [Not Recovered/Not Resolved]
  - Dizziness [Recovered/Resolved]
  - Dementia Alzheimer^s type [Unknown]
  - Fall [Recovered/Resolved]
  - Neoplasm malignant [Unknown]
  - Spinal deformity [Unknown]
  - Dehydration [Unknown]
  - Product dose omission [Unknown]
